FAERS Safety Report 10672715 (Version 1)
Quarter: 2014Q4

REPORT INFORMATION
  Report Type: Spontaneous
  Country: DE (occurrence: DE)
  Receive Date: 20141223
  Receipt Date: 20141223
  Transmission Date: 20150529
  Serious: Yes (Other)
  Sender: FDA-Public Use
  Company Number: DE-009507513-1412DEU010110

PATIENT
  Age: 81 Year
  Sex: Female

DRUGS (1)
  1. TRUSOPT [Suspect]
     Active Substance: DORZOLAMIDE HYDROCHLORIDE
     Dosage: UNK
     Route: 047
     Dates: start: 2004

REACTIONS (2)
  - Basal cell carcinoma [Not Recovered/Not Resolved]
  - Dermatitis allergic [Not Recovered/Not Resolved]
